FAERS Safety Report 4558565-5 (Version None)
Quarter: 2005Q1

REPORT INFORMATION
  Report Type: 
  Country: None (occurrence: None)
  Receive Date: 20050119
  Receipt Date: 20050113
  Transmission Date: 20050727
  Serious: Yes (Life-Threatening)
  Sender: FDA-Public Use
  Company Number: 2005-124260-NL

PATIENT
  Age: 62 Year
  Sex: Female

DRUGS (5)
  1. VECURONIUM BROMIDE [Suspect]
     Indication: INDUCTION OF ANAESTHESIA
     Dosage: 6 MG ONCE INTRAVENOUS (NOS)
     Route: 042
     Dates: start: 20041124, end: 20041124
  2. PROPOFOL [Suspect]
     Indication: INDUCTION OF ANAESTHESIA
     Dosage: 8 ML ONCE INTRAVENOUS (NOS)
     Route: 042
     Dates: start: 20041124, end: 20041124
  3. FENTANYL CITRATE [Suspect]
     Indication: INDUCTION OF ANAESTHESIA
     Dosage: 50 UG ONCE INTRAVENOUS (NOS)
     Route: 042
     Dates: start: 20041124, end: 20041124
  4. SEVOFLURANE [Concomitant]
  5. NITROUS OXIDE [Concomitant]

REACTIONS (3)
  - ANAESTHETIC COMPLICATION [None]
  - PO2 DECREASED [None]
  - PULMONARY OEDEMA [None]
